FAERS Safety Report 13545584 (Version 1)
Quarter: 2017Q2

REPORT INFORMATION
  Report Type: Spontaneous
  Country: US (occurrence: US)
  Receive Date: 20170515
  Receipt Date: 20170515
  Transmission Date: 20170830
  Serious: No
  Sender: FDA-Public Use
  Company Number: US-PFIZER INC-2017209090

PATIENT
  Sex: Female

DRUGS (7)
  1. FASLODEX [Suspect]
     Active Substance: FULVESTRANT
     Indication: MEDIASTINUM NEOPLASM
     Dosage: UNK
  2. FASLODEX [Suspect]
     Active Substance: FULVESTRANT
     Indication: BREAST CANCER FEMALE
     Dosage: UNK
     Route: 030
     Dates: start: 20160921
  3. FASLODEX [Suspect]
     Active Substance: FULVESTRANT
     Indication: RETROPERITONEAL NEOPLASM
  4. FASLODEX [Suspect]
     Active Substance: FULVESTRANT
     Indication: PERITONEAL NEOPLASM
  5. IBRANCE [Suspect]
     Active Substance: PALBOCICLIB
     Indication: BREAST CANCER FEMALE
     Dosage: UNK
     Dates: start: 20160921
  6. FASLODEX [Suspect]
     Active Substance: FULVESTRANT
     Indication: BONE CANCER
     Dosage: 500 MG, CYCLIC (Q28D X 12 CYCLES V4.0)
     Dates: start: 20161017, end: 20170306
  7. FASLODEX [Suspect]
     Active Substance: FULVESTRANT
     Indication: HEPATIC CANCER

REACTIONS (1)
  - Insomnia [Unknown]
